FAERS Safety Report 16453659 (Version 6)
Quarter: 2021Q1

REPORT INFORMATION
  Report Type: Spontaneous
  Country: US (occurrence: US)
  Receive Date: 20190620
  Receipt Date: 20210217
  Transmission Date: 20210419
  Serious: Yes (Other)
  Sender: FDA-Public Use
  Company Number: US-009507513-1906USA007032

PATIENT
  Age: 77 Year
  Sex: Male

DRUGS (17)
  1. TIMOLOL. [Concomitant]
     Active Substance: TIMOLOL
  2. ASMANEX [Suspect]
     Active Substance: MOMETASONE FUROATE
     Dosage: 2 PUFFS TWICE A DAY
  3. OMEPRAZOLE. [Concomitant]
     Active Substance: OMEPRAZOLE
  4. AMLODIPINE [Concomitant]
     Active Substance: AMLODIPINE BESYLATE
  5. TRAVATAN [Concomitant]
     Active Substance: TRAVOPROST
  6. ASMANEX [Suspect]
     Active Substance: MOMETASONE FUROATE
     Indication: ASTHMA
     Dosage: 2 PUFFS A DAY
     Dates: start: 2019
  7. ASMANEX [Suspect]
     Active Substance: MOMETASONE FUROATE
     Dosage: 2 PUFFS TWICE A DAY
     Dates: start: 20210119
  8. ALBUTEROL. [Concomitant]
     Active Substance: ALBUTEROL
  9. ASMANEX [Suspect]
     Active Substance: MOMETASONE FUROATE
     Indication: CHRONIC OBSTRUCTIVE PULMONARY DISEASE
     Dosage: 2 PUFFS DAILY
  10. AMITRIPTYLINE HYDROCHLORIDE. [Concomitant]
     Active Substance: AMITRIPTYLINE HYDROCHLORIDE
  11. METOPROLOL. [Concomitant]
     Active Substance: METOPROLOL
  12. SIMVASTATIN. [Concomitant]
     Active Substance: SIMVASTATIN
  13. PREGABALIN. [Concomitant]
     Active Substance: PREGABALIN
  14. MONTELUKAST [Concomitant]
     Active Substance: MONTELUKAST SODIUM
  15. LISINOPRIL. [Concomitant]
     Active Substance: LISINOPRIL
  16. HYDROCHLOROTHIAZIDE. [Concomitant]
     Active Substance: HYDROCHLOROTHIAZIDE
  17. SPIRIVA [Concomitant]
     Active Substance: TIOTROPIUM BROMIDE MONOHYDRATE

REACTIONS (10)
  - Device malfunction [Unknown]
  - Poor quality device used [Unknown]
  - Dyspnoea [Recovered/Resolved]
  - Cataract [Unknown]
  - Device malfunction [Unknown]
  - Glaucoma [Unknown]
  - Poor quality device used [Unknown]
  - Poor quality device used [Unknown]
  - Device malfunction [Unknown]
  - Inappropriate schedule of product administration [Unknown]

NARRATIVE: CASE EVENT DATE: 2019
